FAERS Safety Report 20621834 (Version 2)
Quarter: 2022Q1

REPORT INFORMATION
  Report Type: Spontaneous
  Country: US (occurrence: US)
  Receive Date: 20220322
  Receipt Date: 20220325
  Transmission Date: 20220423
  Serious: No
  Sender: FDA-Public Use
  Company Number: US-BAYER-2022A035522

PATIENT
  Age: 51 Year
  Sex: Female

DRUGS (2)
  1. ESTRADIOL [Suspect]
     Active Substance: ESTRADIOL
     Dosage: 0.05 MG
     Route: 062
  2. VITAMIN B [Concomitant]
     Active Substance: VITAMIN B

REACTIONS (2)
  - Device adhesion issue [None]
  - Incorrect dose administered by device [None]
